FAERS Safety Report 16200975 (Version 1)
Quarter: 2019Q2

REPORT INFORMATION
  Report Type: Spontaneous
  Country: US (occurrence: US)
  Receive Date: 20190416
  Receipt Date: 20190416
  Transmission Date: 20190711
  Serious: No
  Sender: FDA-Public Use
  Company Number: US-BION-007456

PATIENT
  Age: 76 Year
  Sex: Female
  Weight: 85.28 kg

DRUGS (1)
  1. ALEVE [Suspect]
     Active Substance: NAPROXEN SODIUM
     Indication: PAIN
     Dosage: 1 EVERY 12 HOURS FOR FEW MONTHS
     Route: 048
     Dates: start: 201805, end: 201807

REACTIONS (2)
  - Incorrect product administration duration [Not Recovered/Not Resolved]
  - Blood pressure increased [Recovered/Resolved]
